FAERS Safety Report 8220869-2 (Version None)
Quarter: 2012Q1

REPORT INFORMATION
  Report Type: 
  Country: None (occurrence: None)
  Receive Date: 20120320
  Receipt Date: 20120314
  Transmission Date: 20120608
  Serious: Yes (Life-Threatening, Hospitalization)
  Sender: FDA-Public Use
  Company Number: BR-GENZYME-CAMP-1001598

PATIENT
  Sex: Male
  Weight: 100 kg

DRUGS (5)
  1. METHYLPREDNISOLONE [Concomitant]
     Indication: MULTIPLE SCLEROSIS
     Dosage: 1.0 G, QD
     Route: 042
     Dates: start: 20090713, end: 20090715
  2. METHYLPREDNISOLONE [Concomitant]
     Dosage: 1.0 G, QD
     Route: 042
     Dates: start: 20100720, end: 20100722
  3. DULOXETINE HYDROCHLORIDE [Concomitant]
     Indication: DEPRESSION
     Dosage: 30 MG, QD
     Route: 048
     Dates: start: 20110326
  4. ALEMTUZUMAB [Suspect]
     Dosage: 12 MG, QDX3
     Route: 042
     Dates: start: 20100720, end: 20100722
  5. ALEMTUZUMAB [Suspect]
     Indication: MULTIPLE SCLEROSIS
     Dosage: 12 MG, QDX5
     Route: 042
     Dates: start: 20090713, end: 20090717

REACTIONS (1)
  - AUTOIMMUNE THROMBOCYTOPENIA [None]
